FAERS Safety Report 20819647 (Version 1)
Quarter: 2022Q2

REPORT INFORMATION
  Report Type: Report from Study
  Country: US (occurrence: None)
  Receive Date: 20220512
  Receipt Date: 20220512
  Transmission Date: 20220721
  Serious: Yes (Death)
  Sender: FDA-Public Use
  Company Number: US-ROCHE-756885

PATIENT
  Sex: Female

DRUGS (4)
  1. BEVACIZUMAB [Suspect]
     Active Substance: BEVACIZUMAB
     Indication: Malignant peritoneal neoplasm
     Dosage: DRUG, DOSE AND FRQUENCY NOT REPORTED
     Route: 042
     Dates: start: 20081103, end: 20091117
  2. CARBOPLATIN [Suspect]
     Active Substance: CARBOPLATIN
     Indication: Malignant peritoneal neoplasm
     Dosage: 5AUC
     Route: 042
     Dates: start: 20081103, end: 20091117
  3. DOCETAXEL [Suspect]
     Active Substance: DOCETAXEL
     Indication: Malignant peritoneal neoplasm
     Route: 042
     Dates: start: 20081103, end: 20081117
  4. PACLITAXEL [Suspect]
     Active Substance: PACLITAXEL
     Indication: Malignant peritoneal neoplasm
     Route: 042
     Dates: start: 20081103, end: 20091117

REACTIONS (2)
  - Disease progression [Fatal]
  - Large intestinal obstruction [Fatal]

NARRATIVE: CASE EVENT DATE: 20091206
